FAERS Safety Report 23925884 (Version 1)
Quarter: 2024Q2

REPORT INFORMATION
  Report Type: Report from Study
  Country: CA (occurrence: CA)
  Receive Date: 20240531
  Receipt Date: 20240531
  Transmission Date: 20240716
  Serious: Yes (Hospitalization, Other)
  Sender: FDA-Public Use
  Company Number: CA-HLS-202401343

PATIENT
  Age: 78 Year
  Sex: Female

DRUGS (3)
  1. CLOZARIL [Suspect]
     Active Substance: CLOZAPINE
     Indication: Product used for unknown indication
     Route: 048
     Dates: start: 20240424, end: 20240512
  2. LEXAPRO [Concomitant]
     Active Substance: ESCITALOPRAM OXALATE
     Indication: Product used for unknown indication
     Route: 065
  3. DEPAKOTE [Concomitant]
     Active Substance: DIVALPROEX SODIUM
     Indication: Product used for unknown indication
     Route: 065

REACTIONS (10)
  - Urinary incontinence [Unknown]
  - Brain natriuretic peptide increased [Unknown]
  - Anal incontinence [Unknown]
  - C-reactive protein increased [Unknown]
  - Neutrophil count increased [Not Recovered/Not Resolved]
  - White blood cell count increased [Not Recovered/Not Resolved]
  - Deep vein thrombosis [Unknown]
  - Fall [Unknown]
  - Irritability [Unknown]
  - Troponin I increased [Recovered/Resolved]

NARRATIVE: CASE EVENT DATE: 20240513
